FAERS Safety Report 14287971 (Version 1)
Quarter: 2017Q4

REPORT INFORMATION
  Report Type: Spontaneous
  Country: US (occurrence: US)
  Receive Date: 20171215
  Receipt Date: 20171215
  Transmission Date: 20180321
  Serious: Yes (Other)
  Sender: FDA-Public Use
  Company Number: US-TEVA-2017-US-831572

PATIENT
  Sex: Female

DRUGS (1)
  1. QVAR [Suspect]
     Active Substance: BECLOMETHASONE DIPROPIONATE
     Dates: start: 20171128

REACTIONS (6)
  - Swollen tongue [Unknown]
  - Glossodynia [Unknown]
  - Vulvovaginal discomfort [Unknown]
  - Tongue abscess [Unknown]
  - Pruritus [Unknown]
  - Burning sensation [Unknown]
